FAERS Safety Report 4899592-8 (Version None)
Quarter: 2006Q1

REPORT INFORMATION
  Report Type: 
  Country: None (occurrence: None)
  Receive Date: 20060131
  Receipt Date: 20060112
  Transmission Date: 20060701
  Serious: Yes (Hospitalization)
  Sender: FDA-Public Use
  Company Number: TRP_0669_2005

PATIENT
  Age: 64 Year
  Sex: Female
  Weight: 60.3284 kg

DRUGS (10)
  1. RIBASPHERE [Suspect]
     Indication: HEPATITIS C
     Dosage: 500 MG BID PO
     Route: 048
     Dates: start: 20050324
  2. PEG-INTRON [Suspect]
     Indication: HEPATITIS C
     Dosage: 96 MCG QWK SC
     Route: 058
     Dates: start: 20050324
  3. WELLBUTRIN [Suspect]
     Dosage: 450 MG QAM
     Dates: start: 20051110, end: 20051121
  4. WELLBUTRIN [Suspect]
     Dosage: 300 MG QDAY PO
     Route: 048
     Dates: start: 20051121
  5. PROVIGIL [Suspect]
     Dosage: 1.5 TAB QDAY PO
     Route: 048
     Dates: start: 20051110, end: 20051121
  6. PROVIGIL [Suspect]
     Dosage: 1 TAB QDAY PO
     Route: 048
     Dates: start: 20051121, end: 20051130
  7. WELLBUTRIN [Suspect]
     Dosage: 300 MG QDAY
     Dates: end: 20051110
  8. PROVIGIL [Suspect]
     Dosage: 1 TAB QDAY PO
     Route: 048
     Dates: end: 20051110
  9. EFFEXOR XR [Concomitant]
  10. TOPAMAX [Concomitant]

REACTIONS (12)
  - ABDOMINAL PAIN UPPER [None]
  - ASTHENIA [None]
  - DYSPHEMIA [None]
  - FEELING JITTERY [None]
  - GAIT DISTURBANCE [None]
  - HYPOAESTHESIA [None]
  - LOSS OF CONTROL OF LEGS [None]
  - MENTAL STATUS CHANGES [None]
  - MOVEMENT DISORDER [None]
  - NERVOUSNESS [None]
  - SPEECH DISORDER [None]
  - TREMOR [None]
